FAERS Safety Report 19977950 (Version 1)
Quarter: 2021Q4

REPORT INFORMATION
  Report Type: Spontaneous
  Country: PT (occurrence: PT)
  Receive Date: 20211020
  Receipt Date: 20211020
  Transmission Date: 20220303
  Serious: Yes (Other)
  Sender: FDA-Public Use
  Company Number: None

PATIENT
  Age: 53 Year
  Sex: Female
  Weight: 86 kg

DRUGS (1)
  1. DOVATO [Suspect]
     Active Substance: DOLUTEGRAVIR SODIUM\LAMIVUDINE
     Indication: HIV infection
     Dosage: 1 DF, QD (1 COMP/DAY)
     Route: 048
     Dates: start: 20210505, end: 20210918

REACTIONS (7)
  - Eye pain [Recovering/Resolving]
  - Tinnitus [Recovering/Resolving]
  - Depressed mood [Not Recovered/Not Resolved]
  - Photopsia [Recovering/Resolving]
  - Suicidal ideation [Not Recovered/Not Resolved]
  - Asthenia [Recovering/Resolving]
  - Head discomfort [Recovering/Resolving]

NARRATIVE: CASE EVENT DATE: 20210101
